FAERS Safety Report 7767368-X (Version None)
Quarter: 2011Q3

REPORT INFORMATION
  Report Type: 
  Country: None (occurrence: None)
  Receive Date: 20110922
  Receipt Date: 20100824
  Transmission Date: 20111222
  Serious: No
  Sender: FDA-Public Use
  Company Number: US-ASTRAZENECA-2008UW01158

PATIENT
  Age: 403 Month
  Sex: Female
  Weight: 104.8 kg

DRUGS (7)
  1. SEROQUEL [Suspect]
     Indication: INSOMNIA
     Route: 048
     Dates: start: 20070401, end: 20070701
  2. SEROQUEL [Suspect]
     Route: 048
     Dates: start: 20070401, end: 20070901
  3. SEROQUEL [Suspect]
     Route: 048
     Dates: start: 20070401, end: 20070901
  4. ABILIFY [Concomitant]
     Dates: start: 20061101
  5. GEODON [Concomitant]
  6. HALDOL [Concomitant]
     Dates: start: 20041024
  7. SEROQUEL [Suspect]
     Indication: SLEEP DISORDER
     Route: 048
     Dates: start: 20070401, end: 20070701

REACTIONS (2)
  - TYPE 2 DIABETES MELLITUS [None]
  - DIABETIC COMPLICATION [None]
